FAERS Safety Report 9033816 (Version 1)
Quarter: 2013Q1

REPORT INFORMATION
  Report Type: Spontaneous
  Country: CA (occurrence: CA)
  Receive Date: 20130128
  Receipt Date: 20130128
  Transmission Date: 20140127
  Serious: Yes (Other)
  Sender: FDA-Public Use
  Company Number: CA-AMGEN-CANSP2012070557

PATIENT
  Age: 67 Year
  Sex: Male

DRUGS (2)
  1. ENBREL [Suspect]
     Indication: PSORIATIC ARTHROPATHY
     Dosage: UNK
     Dates: start: 20070329, end: 20101101
  2. HUMIRA [Concomitant]
     Dosage: UNK

REACTIONS (3)
  - Abasia [Recovered/Resolved]
  - Adverse event [Recovered/Resolved]
  - Pain [Recovered/Resolved]
